FAERS Safety Report 8019374-8 (Version None)
Quarter: 2012Q1

REPORT INFORMATION
  Report Type: 
  Country: None (occurrence: None)
  Receive Date: 20120103
  Receipt Date: 20111221
  Transmission Date: 20120608
  Serious: Yes (Other)
  Sender: FDA-Public Use
  Company Number: PHFR2011GB06140

PATIENT
  Sex: Male

DRUGS (3)
  1. PREGABALIN [Concomitant]
     Indication: ANXIOLYTIC THERAPY
     Dosage: 300 MG, UNK
     Route: 048
     Dates: start: 20111001
  2. CLOZARIL [Suspect]
     Indication: SCHIZOPHRENIA
     Dosage: 600 MG, UNK
     Route: 048
     Dates: start: 20110110
  3. AMISULPRIDE [Concomitant]
     Dosage: 400 MG, UNK
     Route: 048
     Dates: start: 20110801

REACTIONS (2)
  - URINARY TRACT INFECTION [None]
  - WHITE BLOOD CELL COUNT INCREASED [None]
